FAERS Safety Report 25278650 (Version 1)
Quarter: 2025Q2

REPORT INFORMATION
  Report Type: Spontaneous
  Country: US (occurrence: None)
  Receive Date: 20250503
  Receipt Date: 20250503
  Transmission Date: 20250717
  Serious: Yes (Disabling, Other)
  Sender: FDA-CTU
  Company Number: None

PATIENT
  Age: 40 Year
  Sex: Male
  Weight: 106.59 kg

DRUGS (11)
  1. TRIUMEQ [Suspect]
     Active Substance: ABACAVIR SULFATE\DOLUTEGRAVIR SODIUM\LAMIVUDINE
     Indication: HIV infection
     Route: 048
  2. FLEXERIL [Suspect]
     Active Substance: CYCLOBENZAPRINE HYDROCHLORIDE
  3. DOVATO [Suspect]
     Active Substance: DOLUTEGRAVIR SODIUM\LAMIVUDINE
  4. COSMETICS [Suspect]
     Active Substance: COSMETICS
     Indication: Therapeutic skin care topical
  5. xyrtec [Concomitant]
  6. NASACORT [Concomitant]
     Active Substance: TRIAMCINOLONE ACETONIDE
  7. MELOXICAM [Concomitant]
     Active Substance: MELOXICAM
  8. VITAMIN D [Concomitant]
     Active Substance: VITAMIN D NOS
  9. cetrzine [Concomitant]
  10. CYCLOBENZAPRINE [Concomitant]
     Active Substance: CYCLOBENZAPRINE
  11. NASACORT [Concomitant]
     Active Substance: TRIAMCINOLONE ACETONIDE

REACTIONS (20)
  - Application site reaction [None]
  - Dermatitis contact [None]
  - Alopecia [None]
  - Secretion discharge [None]
  - Skin discolouration [None]
  - Drug ineffective [None]
  - Drug intolerance [None]
  - Application site vesicles [None]
  - Application site scar [None]
  - Dermatitis contact [None]
  - Flatulence [None]
  - Abdominal distension [None]
  - Somnolence [None]
  - Bowel movement irregularity [None]
  - Nausea [None]
  - Loss of consciousness [None]
  - Malnutrition [None]
  - Reaction to azo-dyes [None]
  - Pain of skin [None]
  - Product complaint [None]

NARRATIVE: CASE EVENT DATE: 20230524
